FAERS Safety Report 4689501-9 (Version None)
Quarter: 2005Q2

REPORT INFORMATION
  Report Type: 
  Country: None (occurrence: None)
  Receive Date: 20050613
  Receipt Date: 20050613
  Transmission Date: 20051028
  Serious: Yes (Hospitalization)
  Sender: FDA-Public Use
  Company Number: None

PATIENT
  Age: 44 Year
  Sex: Male
  Weight: 73 kg

DRUGS (1)
  1. DILANTIN [Suspect]
     Indication: CONVULSION
     Dosage: 300 MG AM , 200 PM
     Dates: start: 20050318, end: 20050320

REACTIONS (5)
  - ANTICONVULSANT TOXICITY [None]
  - COORDINATION ABNORMAL [None]
  - MALAISE [None]
  - NAUSEA [None]
  - VOMITING [None]
